FAERS Safety Report 23331259 (Version 1)
Quarter: 2023Q4

REPORT INFORMATION
  Report Type: Spontaneous
  Country: US (occurrence: None)
  Receive Date: 20231221
  Receipt Date: 20231221
  Transmission Date: 20240109
  Serious: Yes (unspecified)
  Sender: FDA-Public Use
  Company Number: None

PATIENT
  Age: 28 Year
  Sex: Male
  Weight: 67.5 kg

DRUGS (1)
  1. VCF CONTRACEPTIVE [Suspect]
     Active Substance: NONOXYNOL-9

REACTIONS (2)
  - Chemical burn of genitalia [None]
  - Dysuria [None]

NARRATIVE: CASE EVENT DATE: 20231221
